FAERS Safety Report 5570799-X (Version None)
Quarter: 2007Q4

REPORT INFORMATION
  Report Type: 
  Country: None (occurrence: None)
  Receive Date: 20071130
  Receipt Date: 20070716
  Transmission Date: 20080405
  Serious: Yes (Other)
  Sender: FDA-Public Use
  Company Number: WAES 0707USA02305

PATIENT
  Age: 60 Year
  Sex: Female
  Weight: 52.6173 kg

DRUGS (12)
  1. FOSAMAX [Suspect]
     Indication: OSTEOPENIA
     Dosage: 70 MG/WKY/PO
     Route: 048
     Dates: start: 20020729, end: 20040601
  2. ACIPHEX [Concomitant]
  3. CELEBREX [Concomitant]
  4. INDERAL [Concomitant]
  5. PAXIL [Concomitant]
  6. SYNTHROID [Concomitant]
  7. ASCORBIC ACID [Concomitant]
  8. ASPIRIN [Concomitant]
  9. CALCIUM (UNSPECIFIED) [Concomitant]
  10. ESTROGENS (UNSPECIFIED) [Concomitant]
  11. VITAMIN E [Concomitant]
  12. VITAMINS (UNSPECIFIED) [Concomitant]

REACTIONS (5)
  - ARTHROPATHY [None]
  - DIARRHOEA [None]
  - OSTEOARTHRITIS [None]
  - OSTEOMYELITIS ACUTE [None]
  - OSTEONECROSIS [None]
